FAERS Safety Report 25600223 (Version 3)
Quarter: 2025Q4

REPORT INFORMATION
  Report Type: Report from Study
  Country: US (occurrence: US)
  Receive Date: 20250724
  Receipt Date: 20251230
  Transmission Date: 20260118
  Serious: Yes (Other)
  Sender: DECIPHERA PHARMACEUTICALS
  Company Number: US-DECIPHERA PHARMACEUTICALS LLC-2025US000856

PATIENT
  Age: 66 Year
  Sex: Male

DRUGS (3)
  1. QINLOCK [Suspect]
     Active Substance: RIPRETINIB
     Indication: Gastrointestinal stromal tumour
     Dosage: 150 MILLIGRAM, QD
     Route: 061
     Dates: start: 20250325, end: 2025
  2. QINLOCK [Suspect]
     Active Substance: RIPRETINIB
     Dosage: 100 MILLIGRAM, QD
     Route: 061
     Dates: start: 2025, end: 2025
  3. QINLOCK [Suspect]
     Active Substance: RIPRETINIB
     Dosage: 150 MILLIGRAM, QD
     Route: 061
     Dates: start: 2025

REACTIONS (12)
  - Abdominal operation [Unknown]
  - Taste disorder [Unknown]
  - Decreased appetite [Unknown]
  - Depression [Unknown]
  - Incision site impaired healing [Unknown]
  - Loss of personal independence in daily activities [Unknown]
  - Somnolence [Unknown]
  - Asthenia [Unknown]
  - Fatigue [Unknown]
  - Alopecia [Unknown]
  - Product dose omission issue [Unknown]
  - Extra dose administered [Unknown]

NARRATIVE: CASE EVENT DATE: 20250101
